FAERS Safety Report 6022276-X (Version None)
Quarter: 2008Q4

REPORT INFORMATION
  Report Type: 
  Country: None (occurrence: None)
  Receive Date: 20081230
  Receipt Date: 20081222
  Transmission Date: 20090506
  Serious: Yes (Hospitalization, Disabling)
  Sender: FDA-Public Use
  Company Number: US-JNJFOC-20080903188

PATIENT
  Sex: Female
  Weight: 59.88 kg

DRUGS (2)
  1. FENTANYL TRANSDERMAL SYSTEM [Suspect]
     Route: 062
  2. FENTANYL TRANSDERMAL SYSTEM [Suspect]
     Indication: BACK PAIN
     Route: 062

REACTIONS (4)
  - BLOOD CHOLESTEROL INCREASED [None]
  - FALL [None]
  - SYNCOPE [None]
  - URINARY INCONTINENCE [None]
